FAERS Safety Report 23191422 (Version 1)
Quarter: 2023Q4

REPORT INFORMATION
  Report Type: Spontaneous
  Country: US (occurrence: US)
  Receive Date: 20231116
  Receipt Date: 20231116
  Transmission Date: 20240110
  Serious: Yes (Other)
  Sender: FDA-Public Use
  Company Number: US-SA-SAC20231115000028

PATIENT
  Age: 57 Year
  Sex: Female
  Weight: 70.76 kg

DRUGS (1)
  1. DUPIXENT [Suspect]
     Active Substance: DUPILUMAB
     Indication: Asthma
     Dosage: 300 MG, QOW
     Route: 058

REACTIONS (2)
  - Syncope [Not Recovered/Not Resolved]
  - Lung operation [Unknown]

NARRATIVE: CASE EVENT DATE: 20230101
